FAERS Safety Report 13972474 (Version 2)
Quarter: 2018Q3

REPORT INFORMATION
  Report Type: Spontaneous
  Country: US (occurrence: US)
  Receive Date: 20170914
  Receipt Date: 20180913
  Transmission Date: 20181010
  Serious: No
  Sender: FDA-Public Use
  Company Number: US-ASTELLAS-2016US048976

PATIENT
  Age: 66 Year
  Sex: Male

DRUGS (1)
  1. XTANDI [Suspect]
     Active Substance: ENZALUTAMIDE
     Indication: PROSTATE CANCER
     Route: 048
     Dates: start: 20160712

REACTIONS (6)
  - Constipation [Unknown]
  - Lip swelling [Unknown]
  - Nasopharyngitis [Unknown]
  - Dyspnoea [Unknown]
  - Jaw disorder [Unknown]
  - Malaise [Unknown]

NARRATIVE: CASE EVENT DATE: 201804
